FAERS Safety Report 6497145-1 (Version None)
Quarter: 2009Q4

REPORT INFORMATION
  Report Type: 
  Country: None (occurrence: None)
  Receive Date: 20091215
  Receipt Date: 20090803
  Transmission Date: 20100525
  Serious: No
  Sender: FDA-Public Use
  Company Number: A0778428A

PATIENT
  Sex: Male

DRUGS (3)
  1. AVODART [Suspect]
     Indication: MICTURITION DISORDER
     Dosage: .5MG PER DAY
     Route: 048
     Dates: start: 20080101
  2. NITROGLYCERIN [Concomitant]
  3. SPIRIVA [Concomitant]

REACTIONS (4)
  - DRUG INEFFECTIVE [None]
  - MEDICATION RESIDUE [None]
  - PRODUCT QUALITY ISSUE [None]
  - URINE FLOW DECREASED [None]
